FAERS Safety Report 12329285 (Version 1)
Quarter: 2016Q2

REPORT INFORMATION
  Report Type: Spontaneous
  Country: US (occurrence: US)
  Receive Date: 20160503
  Receipt Date: 20160503
  Transmission Date: 20160815
  Serious: No
  Sender: FDA-Public Use
  Company Number: US-AMGEN-USASP2016037659

PATIENT
  Sex: Female

DRUGS (1)
  1. IMLYGIC [Suspect]
     Active Substance: TALIMOGENE LAHERPAREPVEC
     Indication: PRODUCT USED FOR UNKNOWN INDICATION
     Dosage: 4 ML, 10X6TH
     Route: 065

REACTIONS (4)
  - Influenza like illness [Recovering/Resolving]
  - Headache [Recovering/Resolving]
  - Injection site papule [Unknown]
  - Injection site rash [Unknown]

NARRATIVE: CASE EVENT DATE: 201603
